FAERS Safety Report 5959085-3 (Version None)
Quarter: 2008Q4

REPORT INFORMATION
  Report Type: 
  Country: None (occurrence: None)
  Receive Date: 20081120
  Receipt Date: 20071030
  Transmission Date: 20090506
  Serious: No
  Sender: FDA-Public Use
  Company Number: A0690588A

PATIENT
  Age: 27 Year
  Sex: Female

DRUGS (3)
  1. BUPROPION HYDROCHLORIDE [Suspect]
     Indication: DEPRESSION
     Dosage: 150MG TWICE PER DAY
     Route: 048
     Dates: start: 20070917
  2. WELLBUTRIN XL [Suspect]
     Indication: DEPRESSION
     Dosage: 300MG PER DAY
     Route: 048
  3. CELEXA [Concomitant]

REACTIONS (1)
  - TREMOR [None]
